FAERS Safety Report 6719083-9 (Version None)
Quarter: 2010Q2

REPORT INFORMATION
  Report Type: 
  Country: None (occurrence: None)
  Receive Date: 20100511
  Receipt Date: 20100507
  Transmission Date: 20101027
  Serious: Yes (Hospitalization)
  Sender: FDA-Public Use
  Company Number: US-B.I. PHARMACEUTICALS,INC./RIDGEFIELD-2010-BP-02091BP

PATIENT
  Sex: Female

DRUGS (6)
  1. SPIRIVA [Suspect]
     Indication: CHRONIC OBSTRUCTIVE PULMONARY DISEASE
     Dosage: 18 MCG
     Route: 055
     Dates: start: 20080201
  2. SPIRIVA [Suspect]
     Dosage: 18 MCG
     Route: 055
     Dates: start: 20080201, end: 20090601
  3. MORPHINE [Concomitant]
     Indication: PAIN
     Dates: start: 20080201
  4. CHEMO [Concomitant]
  5. PERCOCET [Concomitant]
  6. ASPIRIN [Concomitant]

REACTIONS (8)
  - BLOOD SODIUM DECREASED [None]
  - CATARACT [None]
  - CONSTIPATION [None]
  - CORONARY ARTERY THROMBOSIS [None]
  - LACRIMATION INCREASED [None]
  - PNEUMONIA [None]
  - PULMONARY THROMBOSIS [None]
  - VISION BLURRED [None]
